FAERS Safety Report 16022619 (Version 1)
Quarter: 2019Q1

REPORT INFORMATION
  Report Type: Spontaneous
  Country: CA (occurrence: CA)
  Receive Date: 20190301
  Receipt Date: 20190301
  Transmission Date: 20190418
  Serious: Yes (Other)
  Sender: FDA-Public Use
  Company Number: CA-AUROBINDO-AUR-APL-2019-011162

PATIENT
  Age: 21 Year
  Sex: Male

DRUGS (3)
  1. CIMZIA [Suspect]
     Active Substance: CERTOLIZUMAB PEGOL
     Indication: COLITIS
     Dosage: 400 MILLIGRAM, EVERY 2 WEEKS
     Route: 058
  2. CEFPROZIL. [Suspect]
     Active Substance: CEFPROZIL
     Indication: PHARYNGITIS STREPTOCOCCAL
     Dosage: UNK
     Route: 065
  3. CIMZIA [Suspect]
     Active Substance: CERTOLIZUMAB PEGOL
     Indication: ANKYLOSING SPONDYLITIS
     Dosage: 200 MILLIGRAM, EVERY 2 WEEKS
     Route: 058

REACTIONS (4)
  - Pharyngitis streptococcal [Recovered/Resolved]
  - Rash [Recovered/Resolved]
  - Mononucleosis syndrome [Recovered/Resolved]
  - Off label use [Recovered/Resolved]
